FAERS Safety Report 25535532 (Version 1)
Quarter: 2025Q3

REPORT INFORMATION
  Report Type: Spontaneous
  Country: US (occurrence: US)
  Receive Date: 20250709
  Receipt Date: 20250709
  Transmission Date: 20251021
  Serious: No
  Sender: BOTANIX PHARMACEUTICALS
  Company Number: US-BOTANIX PHARMACEUTICALS-2025BOT00167

PATIENT
  Sex: Male
  Weight: 104.31 kg

DRUGS (1)
  1. SOFDRA [Suspect]
     Active Substance: SOFPIRONIUM BROMIDE
     Indication: Hyperhidrosis
     Dosage: APPLY 1 APPLICATION TO EACH UNDERARM ONCE NIGHTLY AT BEDTIME.
     Route: 061
     Dates: start: 202503, end: 2025

REACTIONS (4)
  - Rash erythematous [Unknown]
  - Skin burning sensation [Unknown]
  - Dry eye [Unknown]
  - Dry mouth [Unknown]

NARRATIVE: CASE EVENT DATE: 20250101
